FAERS Safety Report 23223158 (Version 1)
Quarter: 2023Q4

REPORT INFORMATION
  Report Type: Other
  Country: None (occurrence: US)
  Receive Date: 20231123
  Receipt Date: 20231123
  Transmission Date: 20240109
  Serious: Yes (Life-Threatening, Hospitalization, Disabling)
  Sender: FDA-Public Use
  Company Number: US-Vitruvias Therapeutics-2148629

PATIENT
  Age: 60 Year
  Sex: Female

DRUGS (1)
  1. LIDOCAINE [Suspect]
     Active Substance: LIDOCAINE

REACTIONS (2)
  - Septic shock [Recovered/Resolved with Sequelae]
  - Extradural abscess [Recovered/Resolved]
